FAERS Safety Report 8057951-9 (Version None)
Quarter: 2011Q4

REPORT INFORMATION
  Report Type: 
  Country: None (occurrence: None)
  Receive Date: 20111220
  Receipt Date: 20110405
  Transmission Date: 20120403
  Serious: Yes (Hospitalization)
  Sender: FDA-Public Use
  Company Number: PHHY2011US28806

PATIENT
  Age: 48 Year
  Sex: Male

DRUGS (1)
  1. MYFORTIC [Suspect]
     Indication: RENAL TRANSPLANT
     Dosage: 360 MG,  BID, ORAL
     Route: 048
     Dates: start: 20101115, end: 20110405

REACTIONS (1)
  - URINARY TRACT INFECTION [None]
